FAERS Safety Report 23099770 (Version 2)
Quarter: 2023Q4

REPORT INFORMATION
  Report Type: Spontaneous
  Country: US (occurrence: US)
  Receive Date: 20231024
  Receipt Date: 20231221
  Transmission Date: 20240110
  Serious: No
  Sender: FDA-Public Use
  Company Number: US-ALXN-A202313846

PATIENT
  Sex: Male

DRUGS (1)
  1. SOLIRIS [Suspect]
     Active Substance: ECULIZUMAB
     Indication: Myasthenia gravis
     Dosage: UNK
     Route: 065

REACTIONS (5)
  - Movement disorder [Unknown]
  - Pain in extremity [Unknown]
  - Myalgia [Unknown]
  - Paraesthesia [Unknown]
  - Neck pain [Unknown]

NARRATIVE: CASE EVENT DATE: 20231019
